FAERS Safety Report 8067991-1 (Version None)
Quarter: 2012Q1

REPORT INFORMATION
  Report Type: 
  Country: None (occurrence: None)
  Receive Date: 20120124
  Receipt Date: 20110927
  Transmission Date: 20120608
  Serious: No
  Sender: FDA-Public Use
  Company Number: US-AMGEN-USASP2011036657

PATIENT
  Age: 72 Year
  Sex: Male
  Weight: 93.878 kg

DRUGS (19)
  1. PLAVIX [Concomitant]
     Dosage: 75 MG, QD
  2. ZOCOR [Concomitant]
     Dosage: 1 MG, UNK
  3. GLUCOSAMINE CHONDROITIN [Concomitant]
     Dosage: UNK
  4. RANITIDINE [Concomitant]
     Dosage: 300 MG, QD
  5. FINASTERIDE [Concomitant]
     Dosage: UNK UNK, QD
  6. MOTRIN [Concomitant]
     Dosage: UNK
  7. METFORMIN HCL [Concomitant]
     Dosage: 1 MG, UNK
  8. NITROGLYCERIN [Concomitant]
     Dosage: 1 MG, UNK
  9. PHENAZOPYRIDINE HCL TAB [Concomitant]
     Dosage: UNK
  10. LUPRON [Concomitant]
     Dosage: UNK
  11. LEVEMIR [Concomitant]
     Dosage: 20 UNIT, UNK
  12. DOXAZOSIN MESYLATE [Concomitant]
     Dosage: 2 MG, QD
  13. HYDROCODONE BITARTRATE [Concomitant]
     Dosage: UNK
  14. VITAMIN D [Concomitant]
     Dosage: UNK
  15. VITAMIN B COMPLEX CAP [Concomitant]
     Dosage: UNK
  16. SIMVASTATIN [Concomitant]
     Dosage: 400 G, UNK
  17. XGEVA [Suspect]
     Indication: METASTASES TO BONE
     Dosage: 120 MG, Q4WK
     Dates: start: 20110505, end: 20110601
  18. ASPIRIN [Concomitant]
     Dosage: UNK
  19. ANTIBIOTICS [Concomitant]
     Dosage: UNK
     Dates: start: 20110718

REACTIONS (4)
  - ECCHYMOSIS [None]
  - DRUG ERUPTION [None]
  - RASH ERYTHEMATOUS [None]
  - RASH PRURITIC [None]
